FAERS Safety Report 9706239 (Version 2)
Quarter: 2014Q2

REPORT INFORMATION
  Report Type: Report from Study
  Country: JP (occurrence: JP)
  Receive Date: 20131125
  Receipt Date: 20140513
  Transmission Date: 20141212
  Serious: Yes (Death)
  Sender: FDA-Public Use
  Company Number: JP-ROCHE-1305536

PATIENT
  Age: 83 Year
  Sex: Male

DRUGS (7)
  1. METHOXY POLYETHYLENE GLYCOL-EPOETIN BETA [Suspect]
     Indication: NEPHROGENIC ANAEMIA
     Route: 058
     Dates: start: 20120507, end: 20120702
  2. RENIVACE [Concomitant]
     Route: 048
  3. ADALAT CR [Concomitant]
     Route: 048
  4. ACTOS [Concomitant]
     Route: 048
  5. BAYASPIRIN [Concomitant]
     Route: 048
  6. ARICEPT [Concomitant]
     Route: 048
  7. LANTUS [Concomitant]
     Route: 058

REACTIONS (2)
  - Dizziness [Fatal]
  - Cerebral infarction [Fatal]
